FAERS Safety Report 13617590 (Version 1)
Quarter: 2017Q2

REPORT INFORMATION
  Report Type: Spontaneous
  Country: US (occurrence: US)
  Receive Date: 20170606
  Receipt Date: 20170606
  Transmission Date: 20170830
  Serious: No
  Sender: FDA-Public Use
  Company Number: US-SA-2017SA044333

PATIENT
  Sex: Male

DRUGS (3)
  1. SOLOSTAR [Concomitant]
     Active Substance: DEVICE
     Dates: start: 20170130
  2. LACTULOSE. [Concomitant]
     Active Substance: LACTULOSE
  3. LANTUS SOLOSTAR [Suspect]
     Active Substance: INSULIN GLARGINE
     Route: 065
     Dates: start: 20170130

REACTIONS (3)
  - Blood glucose increased [Unknown]
  - Pollakiuria [Unknown]
  - Weight decreased [Unknown]
